FAERS Safety Report 4776364-6 (Version None)
Quarter: 2005Q3

REPORT INFORMATION
  Report Type: 
  Country: None (occurrence: None)
  Receive Date: 20050921
  Receipt Date: 20050902
  Transmission Date: 20060218
  Serious: Yes (Other)
  Sender: FDA-Public Use
  Company Number: JP_050306177

PATIENT
  Age: 75 Year
  Sex: Female
  Weight: 67 kg

DRUGS (3)
  1. EVISTA [Suspect]
     Indication: OSTEOPOROSIS
     Dosage: 60 MG/1 DAY
     Dates: start: 20050111, end: 20050223
  2. ERSIBON (ALFACALCIDOL) [Concomitant]
  3. PRAVASTATIN [Concomitant]

REACTIONS (2)
  - APLASTIC ANAEMIA [None]
  - BONE MARROW DEPRESSION [None]
